FAERS Safety Report 10156341 (Version 2)
Quarter: 2015Q4

REPORT INFORMATION
  Report Type: Spontaneous
  Country: GB (occurrence: GB)
  Receive Date: 20140507
  Receipt Date: 20151001
  Transmission Date: 20160304
  Serious: Yes (Disabling)
  Sender: FDA-Public Use
  Company Number: GB-DRREDDYS-GER/UKI/14/0040056

PATIENT
  Age: 21 Year
  Sex: Male
  Weight: 152.4 kg

DRUGS (2)
  1. FLUOXETINE [Suspect]
     Active Substance: FLUOXETINE HYDROCHLORIDE
     Indication: PRODUCT USED FOR UNKNOWN INDICATION
  2. SERTRALINE [Suspect]
     Active Substance: SERTRALINE HYDROCHLORIDE
     Indication: DEPRESSION
     Route: 048
     Dates: start: 20121201, end: 20130131

REACTIONS (11)
  - Insomnia [Recovered/Resolved with Sequelae]
  - Aggression [Recovered/Resolved]
  - Decreased appetite [Recovered/Resolved]
  - Musculoskeletal stiffness [Recovered/Resolved]
  - Disturbance in sexual arousal [Recovered/Resolved]
  - Thirst [Recovered/Resolved]
  - Irritability [Recovered/Resolved]
  - Lethargy [Recovered/Resolved with Sequelae]
  - Ejaculation delayed [Recovered/Resolved]
  - Dry mouth [Recovered/Resolved]
  - Migraine [Recovered/Resolved with Sequelae]
